FAERS Safety Report 22973183 (Version 2)
Quarter: 2023Q4

REPORT INFORMATION
  Report Type: Spontaneous
  Country: GB (occurrence: GB)
  Receive Date: 20230922
  Receipt Date: 20231016
  Transmission Date: 20240110
  Serious: Yes (Other)
  Sender: FDA-Public Use
  Company Number: None

PATIENT
  Sex: Female

DRUGS (2)
  1. NEXPLANON [Suspect]
     Active Substance: ETONOGESTREL
     Dosage: 1 IMPLANT OF 68 MG
     Route: 059
     Dates: start: 202202
  2. TOPIRAMATE [Concomitant]
     Active Substance: TOPIRAMATE
     Dosage: UNK

REACTIONS (2)
  - Pregnancy with implant contraceptive [Unknown]
  - Unintended pregnancy [Unknown]
